FAERS Safety Report 7296275-4 (Version None)
Quarter: 2011Q1

REPORT INFORMATION
  Report Type: 
  Country: None (occurrence: None)
  Receive Date: 20110216
  Receipt Date: 20110214
  Transmission Date: 20110831
  Serious: Yes (Hospitalization)
  Sender: FDA-Public Use
  Company Number: FR-SANOFI-AVENTIS-2011SA009534

PATIENT
  Age: 99 Year
  Sex: Female

DRUGS (9)
  1. METRONIDAZOLE [Suspect]
     Route: 048
     Dates: start: 20110104, end: 20110113
  2. SPASFON [Suspect]
     Route: 042
     Dates: start: 20110111, end: 20110112
  3. ASPIRIN [Concomitant]
     Indication: THROMBOSIS PROPHYLAXIS
     Route: 048
  4. PRAVASTATIN SODIUM [Suspect]
     Route: 048
     Dates: start: 20110107, end: 20110113
  5. FOLIC ACID [Concomitant]
     Route: 048
     Dates: start: 20110112
  6. ACETAMINOPHEN [Concomitant]
     Indication: PAIN
     Route: 048
  7. TRANSIPEG /FRA/ [Concomitant]
     Indication: CONSTIPATION
     Dosage: DOSE:2 UNIT(S)
     Route: 048
  8. CEFTRIAXONE SODIUM [Suspect]
     Route: 042
     Dates: start: 20110104, end: 20110113
  9. XATRAL [Suspect]
     Indication: URINARY RETENTION
     Route: 048
     Dates: start: 20110107, end: 20110113

REACTIONS (1)
  - AGRANULOCYTOSIS [None]
